FAERS Safety Report 26213053 (Version 1)
Quarter: 2025Q4

REPORT INFORMATION
  Report Type: Spontaneous
  Country: US (occurrence: US)
  Receive Date: 20251230
  Receipt Date: 20251230
  Transmission Date: 20260118
  Serious: No
  Sender: SANOFI AVENTIS
  Company Number: US-SA-2025SA387339

PATIENT
  Age: 34 Year
  Sex: Female
  Weight: 97.52 kg

DRUGS (3)
  1. DUPIXENT [Suspect]
     Active Substance: DUPILUMAB
     Indication: Dermatitis atopic
     Dosage: 300 MG, QOW
     Route: 058
  2. ALEVE [Concomitant]
     Active Substance: NAPROXEN SODIUM
  3. MECLIZINE HYDROCHLORIDE [Concomitant]
     Active Substance: MECLIZINE HYDROCHLORIDE

REACTIONS (6)
  - Dermatitis atopic [Unknown]
  - Drug dose omission by device [Unknown]
  - Injection site pain [Unknown]
  - Device issue [Unknown]
  - Accidental exposure to product [Unknown]
  - Exposure via skin contact [Unknown]

NARRATIVE: CASE EVENT DATE: 20251220
